FAERS Safety Report 9340822 (Version 1)
Quarter: 2013Q2

REPORT INFORMATION
  Report Type: Report from Study
  Country: NL (occurrence: NL)
  Receive Date: 20130610
  Receipt Date: 20130610
  Transmission Date: 20140414
  Serious: Yes (Other)
  Sender: FDA-Public Use
  Company Number: NL-COVIDIEN/TYCO HEALTHCARE/MALLINCKRODT-T201302656

PATIENT
  Sex: Female

DRUGS (2)
  1. SODIUM IODIDE (I 131) CAPSULES T [Suspect]
     Indication: BASEDOW^S DISEASE
     Dosage: 3.7 MBQ/ML OR 7.4 MBQ/ML
     Route: 048
  2. SODIUM IODIDE (I 131) CAPSULES T [Concomitant]
     Indication: IODINE UPTAKE
     Dosage: 0.37 MBQ, TRACER ACTIVITY
     Route: 048

REACTIONS (1)
  - Hypothyroidism [Unknown]
